FAERS Safety Report 11917103 (Version 2)
Quarter: 2016Q1

REPORT INFORMATION
  Report Type: Spontaneous
  Country: PL (occurrence: PL)
  Receive Date: 20160114
  Receipt Date: 20160122
  Transmission Date: 20160526
  Serious: Yes (Death, Other)
  Sender: FDA-Public Use
  Company Number: PL-BAXTER-2016BAX001483

PATIENT
  Age: 45 Year
  Sex: Female

DRUGS (10)
  1. VP-16 [Suspect]
     Active Substance: ETOPOSIDE
     Indication: NON-HODGKIN^S LYMPHOMA
     Route: 065
  2. VINCRISTINE [Suspect]
     Active Substance: VINCRISTINE
     Indication: NON-HODGKIN^S LYMPHOMA
     Route: 065
  3. ENDOXAN [Suspect]
     Active Substance: CYCLOPHOSPHAMIDE
     Indication: NON-HODGKIN^S LYMPHOMA
     Route: 048
  4. CISPLATIN. [Suspect]
     Active Substance: CISPLATIN
     Indication: NON-HODGKIN^S LYMPHOMA
     Dosage: IN DAY 1
     Route: 065
  5. NATULAN [Suspect]
     Active Substance: PROCARBAZINE HYDROCHLORIDE
     Indication: NON-HODGKIN^S LYMPHOMA
     Route: 065
  6. VINBLASTINE [Suspect]
     Active Substance: VINBLASTINE
     Indication: NON-HODGKIN^S LYMPHOMA
     Route: 065
  7. VEPESID [Suspect]
     Active Substance: ETOPOSIDE
     Indication: NON-HODGKIN^S LYMPHOMA
     Dosage: IN DAY 1 TO 3
     Route: 065
  8. ADRIAMYCIN [Suspect]
     Active Substance: DOXORUBICIN HYDROCHLORIDE
     Indication: NON-HODGKIN^S LYMPHOMA
     Route: 065
  9. BLEOMYCIN [Suspect]
     Active Substance: BLEOMYCIN SULFATE
     Indication: NON-HODGKIN^S LYMPHOMA
     Route: 065
  10. NITROGRANULOGEN [Suspect]
     Active Substance: MECHLORETHAMINE HYDROCHLORIDE
     Indication: NON-HODGKIN^S LYMPHOMA
     Route: 065

REACTIONS (11)
  - Pleural effusion [Unknown]
  - Acute kidney injury [Fatal]
  - Leukopenia [Not Recovered/Not Resolved]
  - Therapeutic response decreased [Unknown]
  - Pulmonary oedema [Unknown]
  - Pyrexia [Unknown]
  - Heart rate increased [None]
  - Fatigue [Unknown]
  - Mouth ulceration [Unknown]
  - Alopecia [Unknown]
  - Acute respiratory distress syndrome [None]
